FAERS Safety Report 16891199 (Version 1)
Quarter: 2019Q4

REPORT INFORMATION
  Report Type: Spontaneous
  Country: US (occurrence: US)
  Receive Date: 20191007
  Receipt Date: 20191007
  Transmission Date: 20200122
  Serious: No
  Sender: FDA-Public Use
  Company Number: US-SA-2019SA273616

PATIENT
  Sex: Male

DRUGS (1)
  1. ZANTAC 150 (RANITIDINE HYDROCHLORIDE) [Suspect]
     Active Substance: RANITIDINE HYDROCHLORIDE
     Indication: PRODUCT USED FOR UNKNOWN INDICATION
     Dosage: 150 UNK

REACTIONS (1)
  - Hypoacusis [Unknown]
